FAERS Safety Report 18232718 (Version 1)
Quarter: 2020Q3

REPORT INFORMATION
  Report Type: Spontaneous
  Country: US (occurrence: US)
  Receive Date: 20200903
  Receipt Date: 20200903
  Transmission Date: 20201103
  Serious: Yes (Hospitalization)
  Sender: FDA-Public Use
  Company Number: None

PATIENT
  Sex: Female

DRUGS (37)
  1. FAMOTIDINE. [Concomitant]
     Active Substance: FAMOTIDINE
  2. LOTEPREDNOL [Concomitant]
     Active Substance: LOTEPREDNOL
  3. AZITHROMYCIN ANHYDROUS. [Concomitant]
     Active Substance: AZITHROMYCIN ANHYDROUS
  4. FLUCONAZOLE. [Concomitant]
     Active Substance: FLUCONAZOLE
  5. JUNEL FE 24 [Concomitant]
     Active Substance: ETHINYL ESTRADIOL\NORETHINDRONE ACETATE
  6. VITAMIN D3 [Concomitant]
     Active Substance: CHOLECALCIFEROL
  7. APAP/CODEINE [Concomitant]
     Active Substance: ACETAMINOPHEN\CODEINE PHOSPHATE
  8. SULFASALAZINE DELAYED?RELEASE [Concomitant]
     Active Substance: SULFASALAZINE
  9. CEFDINIR. [Concomitant]
     Active Substance: CEFDINIR
  10. IBUPROFEN. [Concomitant]
     Active Substance: IBUPROFEN
  11. MEDROXYPR AC [Concomitant]
  12. NAPROXEN. [Concomitant]
     Active Substance: NAPROXEN
  13. NITROFURANTIN [Concomitant]
     Active Substance: NITROFURANTOIN
  14. LORAZEPAM. [Concomitant]
     Active Substance: LORAZEPAM
  15. METOCLOPRAM [Concomitant]
     Active Substance: METOCLOPRAMIDE
  16. ONDANSETRON [Concomitant]
     Active Substance: ONDANSETRON
  17. ORPHENADRINE [Concomitant]
     Active Substance: ORPHENADRINE
  18. TRAMADOL HCL [Concomitant]
     Active Substance: TRAMADOL HYDROCHLORIDE
  19. AZELASTINE. [Concomitant]
     Active Substance: AZELASTINE HYDROCHLORIDE
  20. HYDROXYZ HCL [Concomitant]
     Active Substance: HYDROXYZINE HYDROCHLORIDE
  21. METHOCARBAM [Concomitant]
     Active Substance: METHOCARBAMOL
  22. PREDNISONE. [Concomitant]
     Active Substance: PREDNISONE
  23. HUMIRA [Suspect]
     Active Substance: ADALIMUMAB
     Indication: ANKYLOSING SPONDYLITIS
     Dosage: 1 PEN
     Route: 058
     Dates: start: 20200725
  24. CELECOXIB. [Concomitant]
     Active Substance: CELECOXIB
  25. DIAZEPAM. [Concomitant]
     Active Substance: DIAZEPAM
  26. DICLOFECNAC [Concomitant]
  27. MECLIZINE [Concomitant]
     Active Substance: MECLIZINE HYDROCHLORIDE
  28. TIZANIDINE. [Concomitant]
     Active Substance: TIZANIDINE
  29. TRIAMCINOLON CRE [Concomitant]
  30. CIMETIDINE [Concomitant]
     Active Substance: CIMETIDINE
  31. DORZOL/TIMOL [Concomitant]
  32. ESCITALOPRAM [Concomitant]
     Active Substance: ESCITALOPRAM OXALATE
  33. MAG CITRATE [Concomitant]
  34. METHYLPRED [Concomitant]
     Active Substance: METHYLPREDNISOLONE
  35. PREDNISOLONE. [Concomitant]
     Active Substance: PREDNISOLONE
  36. PROMETHAZINE SUCRALFATE [Concomitant]
  37. TRIAMCINOLON OIN [Concomitant]

REACTIONS (3)
  - Hypersensitivity [None]
  - Gallbladder operation [None]
  - Therapy interrupted [None]
